FAERS Safety Report 6348934-5 (Version None)
Quarter: 2009Q3

REPORT INFORMATION
  Report Type: 
  Country: None (occurrence: None)
  Receive Date: 20090911
  Receipt Date: 20090828
  Transmission Date: 20100115
  Serious: Yes (Hospitalization)
  Sender: FDA-Public Use
  Company Number: BE-ABBOTT-02P-013-0193644-00

PATIENT
  Sex: Female

DRUGS (12)
  1. HUMIRA [Suspect]
     Indication: RHEUMATOID ARTHRITIS
     Dosage: 40 MG
     Route: 058
     Dates: start: 20010905, end: 20020301
  2. METHOTREXATE [Concomitant]
     Indication: RHEUMATOID ARTHRITIS
     Dosage: 20 MG
     Route: 048
     Dates: start: 20010905, end: 20020325
  3. CIPROFIBRATE [Concomitant]
     Indication: HYPERCHOLESTEROLAEMIA
     Dates: start: 19900101
  4. OXAZEPAM [Concomitant]
     Indication: SLEEP DISORDER
     Dates: start: 20020401
  5. LOSARTAN POTASSIUM [Concomitant]
     Dates: start: 20010816
  6. INDOMETHACIN [Concomitant]
     Indication: RHEUMATOID ARTHRITIS
     Route: 048
     Dates: start: 20010810, end: 20020401
  7. INDOMETHACINE RETARD [Concomitant]
     Route: 048
     Dates: start: 20010810, end: 20020401
  8. CELECOXIB [Concomitant]
     Indication: RHEUMATOID ARTHRITIS
     Route: 048
     Dates: start: 20020401
  9. FUROSEMIDE [Concomitant]
     Route: 048
     Dates: start: 20010816
  10. ATENOLOL [Concomitant]
     Route: 048
     Dates: start: 19950101, end: 20020401
  11. MOXONIDINE [Concomitant]
     Indication: HYPERTENSION
     Route: 048
     Dates: start: 20020401
  12. CARVEDILOL [Concomitant]
     Indication: HYPERTENSION
     Route: 048
     Dates: start: 20020401

REACTIONS (2)
  - PLEURISY [None]
  - TUBERCULOSIS [None]
